FAERS Safety Report 5417860-8 (Version None)
Quarter: 2007Q3

REPORT INFORMATION
  Report Type: 
  Country: None (occurrence: None)
  Receive Date: 20070817
  Receipt Date: 20070809
  Transmission Date: 20080115
  Serious: Yes (Other)
  Sender: FDA-Public Use
  Company Number: ES-JNJFOC-20070801937

PATIENT

DRUGS (3)
  1. LEVOFLOXACIN [Suspect]
     Indication: HELICOBACTER INFECTION
     Route: 065
  2. AMOXICILLIN [Suspect]
     Indication: HELICOBACTER INFECTION
     Route: 065
  3. RANITIDINE BISMUTH CITRATE [Suspect]
     Indication: HELICOBACTER INFECTION
     Route: 065

REACTIONS (1)
  - APHTHOUS STOMATITIS [None]
